FAERS Safety Report 11374317 (Version 1)
Quarter: 2015Q3

REPORT INFORMATION
  Report Type: Spontaneous
  Country: US (occurrence: US)
  Receive Date: 20150813
  Receipt Date: 20150813
  Transmission Date: 20151125
  Serious: Yes (Other)
  Sender: FDA-Public Use
  Company Number: US-AMGEN-USASP2015022980

PATIENT
  Age: 84 Year
  Sex: Female

DRUGS (1)
  1. XGEVA [Suspect]
     Active Substance: DENOSUMAB
     Indication: BREAST CANCER
     Dosage: UNK
     Route: 065
     Dates: start: 201201, end: 201502

REACTIONS (9)
  - Pain in jaw [Unknown]
  - Metastases to spine [Unknown]
  - Gingival pain [Recovering/Resolving]
  - Hypophagia [Not Recovered/Not Resolved]
  - Trismus [Not Recovered/Not Resolved]
  - Lung cancer metastatic [Unknown]
  - Tooth abscess [Not Recovered/Not Resolved]
  - Hepatic cancer metastatic [Unknown]
  - Oral pain [Recovering/Resolving]
